FAERS Safety Report 16292754 (Version 1)
Quarter: 2019Q2

REPORT INFORMATION
  Report Type: Spontaneous
  Country: US (occurrence: US)
  Receive Date: 20190509
  Receipt Date: 20190509
  Transmission Date: 20190711
  Serious: No
  Sender: FDA-Public Use
  Company Number: US-ALKERMES INC.-ALK-2018-004165

PATIENT
  Age: 40 Year
  Sex: Female

DRUGS (2)
  1. VIVITROL [Suspect]
     Active Substance: NALTREXONE
     Indication: DRUG DEPENDENCE
  2. VIVITROL [Suspect]
     Active Substance: NALTREXONE
     Indication: ALCOHOLISM
     Dosage: 380 MG, QMO
     Route: 058
     Dates: start: 20180720

REACTIONS (8)
  - Lethargy [Unknown]
  - Aphasia [Unknown]
  - Gait disturbance [Recovered/Resolved]
  - Motor dysfunction [Unknown]
  - Confusional state [Recovered/Resolved]
  - Dizziness [Recovered/Resolved]
  - Incorrect route of product administration [Not Recovered/Not Resolved]
  - Nausea [Recovered/Resolved]

NARRATIVE: CASE EVENT DATE: 201807
